FAERS Safety Report 14108730 (Version 1)
Quarter: 2017Q4

REPORT INFORMATION
  Report Type: Report from Study
  Country: US (occurrence: US)
  Receive Date: 20171019
  Receipt Date: 20171019
  Transmission Date: 20180321
  Serious: Yes (Hospitalization)
  Sender: FDA-Public Use
  Company Number: US-ACTELION-A-NJ2016-141483

PATIENT
  Age: 63 Year
  Sex: Female
  Weight: 57.14 kg

DRUGS (2)
  1. OPSUMIT [Suspect]
     Active Substance: MACITENTAN
     Indication: PULMONARY ARTERIAL HYPERTENSION
     Dosage: 10 MG, QD
     Route: 048
     Dates: start: 20150602
  2. ADCIRCA [Concomitant]
     Active Substance: TADALAFIL

REACTIONS (16)
  - Pyrexia [Unknown]
  - Malaise [Unknown]
  - Presyncope [Unknown]
  - Diarrhoea [Unknown]
  - Chest pain [Unknown]
  - Exercise tolerance decreased [Unknown]
  - Drug dose omission [Unknown]
  - Defaecation urgency [Unknown]
  - Pneumonia [Unknown]
  - Unevaluable event [Unknown]
  - Nervousness [Unknown]
  - Dyspnoea [Unknown]
  - Dizziness [Unknown]
  - Oxygen saturation decreased [Unknown]
  - Cough [Unknown]
  - Gastroenteritis viral [Unknown]

NARRATIVE: CASE EVENT DATE: 20170718
